FAERS Safety Report 20282020 (Version 1)
Quarter: 2022Q1

REPORT INFORMATION
  Report Type: Spontaneous
  Country: US (occurrence: US)
  Receive Date: 20220103
  Receipt Date: 20220103
  Transmission Date: 20220423
  Serious: Yes (Hospitalization)
  Sender: FDA-Public Use
  Company Number: US-MYLANLABS-2022M1000349

PATIENT
  Age: 76 Year
  Sex: Male

DRUGS (6)
  1. HALOPERIDOL [Suspect]
     Active Substance: HALOPERIDOL
     Indication: Disturbance in social behaviour
     Dosage: UNK
     Route: 065
  2. HALOPERIDOL [Suspect]
     Active Substance: HALOPERIDOL
     Indication: Dementia Alzheimer^s type
  3. QUETIAPINE [Suspect]
     Active Substance: QUETIAPINE
     Indication: Disturbance in social behaviour
     Dosage: UNK
     Route: 065
  4. QUETIAPINE [Suspect]
     Active Substance: QUETIAPINE
     Indication: Dementia Alzheimer^s type
  5. VALPROIC ACID [Suspect]
     Active Substance: VALPROIC ACID
     Indication: Disturbance in social behaviour
     Dosage: UNK
     Route: 065
  6. VALPROIC ACID [Suspect]
     Active Substance: VALPROIC ACID
     Indication: Dementia Alzheimer^s type

REACTIONS (5)
  - Parkinsonism [Unknown]
  - Rebound effect [Unknown]
  - Agitation [Unknown]
  - Periorbital oedema [Recovered/Resolved]
  - Oedema peripheral [Recovered/Resolved]
